FAERS Safety Report 9200759 (Version 1)
Quarter: 2013Q1

REPORT INFORMATION
  Report Type: Spontaneous
  Country: GB (occurrence: None)
  Receive Date: 20130327
  Receipt Date: 20130327
  Transmission Date: 20140127
  Serious: Yes (Other)
  Sender: FDA-Public Use
  Company Number: 2013-04862

PATIENT
  Age: 23 Year
  Sex: Male
  Weight: 83 kg

DRUGS (8)
  1. MIRTAZAPINE (UNKNOWN) (MIRTAZAPINE) UNK, UNKUNK [Suspect]
     Indication: DEPRESSION
     Route: 048
     Dates: start: 20101010
  2. DIAZEPAM (DIAZEPAM) [Suspect]
  3. LANSOPRAZOLE (LANSOPRAZOLE) [Concomitant]
  4. METOCLOPRAMIDE (METOCLOPRAMIDE) [Concomitant]
  5. PREGABALIN (PREGABALIN) [Concomitant]
  6. CODEINE PHOSPHATE (CODEINE PHOSPHATE) [Concomitant]
  7. FLUCLOXACILLIN (FLUCLOXACILLIN) [Suspect]
  8. AMOXICILLIN (AMOXICILLIN) [Concomitant]

REACTIONS (9)
  - Rapid eye movements sleep abnormal [None]
  - Circadian rhythm sleep disorder [None]
  - Neuralgia [None]
  - Hallucination [None]
  - Dyskinesia [None]
  - Muscle spasms [None]
  - Parosmia [None]
  - Sleep paralysis [None]
  - Head discomfort [None]
